FAERS Safety Report 7170241-1 (Version None)
Quarter: 2010Q4

REPORT INFORMATION
  Report Type: 
  Country: None (occurrence: None)
  Receive Date: 20101217
  Receipt Date: 20101209
  Transmission Date: 20110411
  Serious: Yes (Other)
  Sender: FDA-Public Use
  Company Number: US-PFIZER INC-2010169358

PATIENT

DRUGS (1)
  1. XALATAN [Suspect]

REACTIONS (3)
  - DYSPNOEA [None]
  - EPISTAXIS [None]
  - PRODUCTIVE COUGH [None]
